FAERS Safety Report 18302708 (Version 2)
Quarter: 2021Q2

REPORT INFORMATION
  Report Type: Spontaneous
  Country: CA (occurrence: CA)
  Receive Date: 20200923
  Receipt Date: 20210421
  Transmission Date: 20210717
  Serious: Yes (Death, Hospitalization, Other)
  Sender: FDA-Public Use
  Company Number: CA-SAMSUNG BIOEPIS-SB-2020-28886

PATIENT
  Age: 73 Year
  Sex: Female
  Weight: 77 kg

DRUGS (1)
  1. INFLIXIMAB [Suspect]
     Active Substance: INFLIXIMAB
     Indication: CROHN^S DISEASE
     Route: 042

REACTIONS (12)
  - Hip fracture [Fatal]
  - Dementia [Fatal]
  - Dysstasia [Fatal]
  - Fall [Fatal]
  - Condition aggravated [Fatal]
  - Faecal calprotectin increased [Fatal]
  - Death [Fatal]
  - Heart rate irregular [Fatal]
  - Gastrointestinal inflammation [Fatal]
  - Drug level above therapeutic [Fatal]
  - Intentional product use issue [Fatal]
  - Off label use [Fatal]
